FAERS Safety Report 23772297 (Version 1)
Quarter: 2024Q2

REPORT INFORMATION
  Report Type: Spontaneous
  Country: BR (occurrence: BR)
  Receive Date: 20240423
  Receipt Date: 20240423
  Transmission Date: 20240715
  Serious: Yes (Disabling, Other)
  Sender: FDA-Public Use
  Company Number: BR-CHEPLA-2024004921

PATIENT
  Sex: Female
  Weight: 76 kg

DRUGS (4)
  1. CLONAZEPAM [Suspect]
     Active Substance: CLONAZEPAM
     Indication: Mental disorder
     Dosage: 25 YEARS AGO (1999), WITH A DOSAGE OF 1 TABLET, THREE TIMES A DAY
     Route: 048
     Dates: start: 1999
  2. CLONAZEPAM [Suspect]
     Active Substance: CLONAZEPAM
     Indication: Mental disorder
     Dosage: 2 MG, 1/4 TABLET A DAY
     Route: 048
     Dates: start: 202404
  3. CLONAZEPAM [Suspect]
     Active Substance: CLONAZEPAM
     Indication: Mental disorder
     Dosage: ^A LONG TIME LATER^ ( NOT SPECIFIED), DECREASED THE DOSAGE TO 2 TABLETS A DAY
     Route: 048
     Dates: end: 202402
  4. BROMAZEPAM [Concomitant]
     Active Substance: BROMAZEPAM
     Indication: Mental disorder
     Dosage: PATIENT REDUCED THE DOSAGE TO 2 TABLETS A DAY, ON HER OWN
     Route: 048
     Dates: start: 202402, end: 202403

REACTIONS (13)
  - Drug dependence [Not Recovered/Not Resolved]
  - Malaise [Not Recovered/Not Resolved]
  - Dizziness [Not Recovered/Not Resolved]
  - Insomnia [Not Recovered/Not Resolved]
  - Musculoskeletal stiffness [Not Recovered/Not Resolved]
  - Ear inflammation [Not Recovered/Not Resolved]
  - Hypoacusis [Not Recovered/Not Resolved]
  - Pharyngitis [Not Recovered/Not Resolved]
  - Urinary incontinence [Not Recovered/Not Resolved]
  - Arthralgia [Not Recovered/Not Resolved]
  - Gait disturbance [Not Recovered/Not Resolved]
  - Intentional product use issue [Not Recovered/Not Resolved]
  - Hypertension [Not Recovered/Not Resolved]

NARRATIVE: CASE EVENT DATE: 20190101
